FAERS Safety Report 8037855-8 (Version None)
Quarter: 2012Q1

REPORT INFORMATION
  Report Type: 
  Country: None (occurrence: None)
  Receive Date: 20120111
  Receipt Date: 20120104
  Transmission Date: 20120608
  Serious: Yes (Other)
  Sender: FDA-Public Use
  Company Number: US-ASTRAZENECA-2010SE38854

PATIENT
  Age: 53 Year
  Sex: Female

DRUGS (3)
  1. NEXIUM [Suspect]
     Route: 048
  2. EFFEXOR XR [Concomitant]
  3. ZOMIG-ZMT [Suspect]
     Route: 048

REACTIONS (7)
  - MIGRAINE [None]
  - ROAD TRAFFIC ACCIDENT [None]
  - DRUG DOSE OMISSION [None]
  - DRUG INEFFECTIVE [None]
  - CRANIOCEREBRAL INJURY [None]
  - SLEEP DISORDER [None]
  - NAUSEA [None]
